FAERS Safety Report 16709357 (Version 1)
Quarter: 2019Q3

REPORT INFORMATION
  Report Type: Spontaneous
  Country: US (occurrence: US)
  Receive Date: 20190701
  Receipt Date: 20190701
  Transmission Date: 20191004
  Serious: Yes (Hospitalization)
  Sender: FDA-Public Use
  Company Number: None

PATIENT
  Age: 78 Year
  Sex: Female

DRUGS (17)
  1. LEVETIRACETA SL [Concomitant]
  2. MOMETASNE  CRE [Concomitant]
  3. SYNTHROID [Concomitant]
     Active Substance: LEVOTHYROXINE SODIUM
  4. TADALAFIL  TAB [Suspect]
     Active Substance: TADALAFIL
     Indication: PULMONARY ARTERIAL HYPERTENSION
     Dates: start: 20190629
  5. ESCITALOPRAM [Suspect]
     Active Substance: ESCITALOPRAM OXALATE
  6. ALBUTEROL. [Concomitant]
     Active Substance: ALBUTEROL
  7. ARICEPT [Concomitant]
     Active Substance: DONEPEZIL HYDROCHLORIDE
  8. IPRATROFIUM/SOL ALBUTER [Suspect]
     Active Substance: ALBUTEROL\IPRATROPIUM
  9. LAXATIVE TAB [Concomitant]
  10. OMEGA-3 CAP [Concomitant]
  11. TADALAFIL. [Concomitant]
     Active Substance: TADALAFIL
  12. TOLTERODINE [Concomitant]
     Active Substance: TOLTERODINE
  13. GABAPENTIN. [Concomitant]
     Active Substance: GABAPENTIN
  14. LOSARTAN POT TAB [Concomitant]
  15. METAMUCIL POW [Concomitant]
  16. MONTELUKAST TAB [Concomitant]
  17. STOOL SOFTNER [Concomitant]

REACTIONS (2)
  - Pneumonia [None]
  - Chronic obstructive pulmonary disease [None]

NARRATIVE: CASE EVENT DATE: 201906
